FAERS Safety Report 10384128 (Version 1)
Quarter: 2014Q1

REPORT INFORMATION
  Report Type: Spontaneous
  Country: US (occurrence: None)
  Receive Date: 20140306
  Receipt Date: 20140306
  Transmission Date: 20141002
  Serious: Yes (Other)
  Sender: FDA-Public Use
  Company Number: 163-21880-13110088

PATIENT
  Age: 68 Year
  Sex: Male

DRUGS (12)
  1. REVLIMID (LENALIDOMIDE) (10 MILLIGRAM, CAPSULES) [Suspect]
     Dosage: 10 MG, 21 IN 28 D, PO?
     Route: 048
     Dates: start: 201101, end: 2011
  2. DECADRON (DEXAMETHASONE) [Concomitant]
  3. AMARYL (GLIMEPIRIDE) [Concomitant]
  4. COUMADIN (WARFARIN SODIUM) [Concomitant]
  5. GLUCOSAMINE [Concomitant]
  6. ATENOLOL [Concomitant]
  7. POTASSIUM [Concomitant]
  8. IRON [Concomitant]
  9. FISH OIL [Concomitant]
  10. MULTIVITAMINS [Concomitant]
  11. SULFAMETHOXAZOLE [Concomitant]
  12. TRIAM/CHTZ (DYAZIDE) [Concomitant]

REACTIONS (2)
  - Anaemia [None]
  - White blood cell count decreased [None]
